FAERS Safety Report 23976331 (Version 1)
Quarter: 2024Q2

REPORT INFORMATION
  Report Type: Spontaneous
  Country: US (occurrence: None)
  Receive Date: 20240613
  Receipt Date: 20240613
  Transmission Date: 20240716
  Serious: Yes (Death, Life-Threatening, Hospitalization)
  Sender: FDA-Public Use
  Company Number: None

PATIENT
  Age: 64 Year
  Sex: Male
  Weight: 121.95 kg

DRUGS (1)
  1. TIRZEPATIDE [Suspect]
     Active Substance: TIRZEPATIDE
     Indication: Obesity
     Dosage: 7.5 WEEKLY SUBCUTANEOUS
     Route: 058
     Dates: start: 20240421, end: 20240611

REACTIONS (8)
  - Nausea [None]
  - Vomiting [None]
  - Abdominal pain [None]
  - Abdominal distension [None]
  - Hypoxia [None]
  - Liver function test abnormal [None]
  - Renal impairment [None]
  - Intestinal ischaemia [None]

NARRATIVE: CASE EVENT DATE: 20240611
